FAERS Safety Report 6202654-6 (Version None)
Quarter: 2009Q2

REPORT INFORMATION
  Report Type: 
  Country: None (occurrence: None)
  Receive Date: 20090526
  Receipt Date: 20090520
  Transmission Date: 20091009
  Serious: Yes (Other)
  Sender: FDA-Public Use
  Company Number: DE-PFIZER INC-2009188154

PATIENT
  Age: 47 Year

DRUGS (1)
  1. CHAMPIX [Suspect]
     Indication: SMOKING CESSATION THERAPY
     Dosage: 0.5 MG, 1X/DAY
     Route: 048
     Dates: start: 20090214, end: 20090222

REACTIONS (10)
  - AMNESIA [None]
  - APATHY [None]
  - CRYING [None]
  - FOOD CRAVING [None]
  - HEADACHE [None]
  - IMPULSIVE BEHAVIOUR [None]
  - IRRITABILITY [None]
  - NERVOUSNESS [None]
  - RESTLESSNESS [None]
  - SUICIDE ATTEMPT [None]
